FAERS Safety Report 11146504 (Version 3)
Quarter: 2015Q3

REPORT INFORMATION
  Report Type: Spontaneous
  Country: US (occurrence: US)
  Receive Date: 20150528
  Receipt Date: 20150707
  Transmission Date: 20151125
  Serious: Yes (Other)
  Sender: FDA-Public Use
  Company Number: US-PFIZER INC-2015088937

PATIENT
  Age: 55 Year
  Sex: Female
  Weight: 122 kg

DRUGS (26)
  1. LYRICA [Suspect]
     Active Substance: PREGABALIN
     Indication: DIABETIC NEUROPATHY
     Dosage: 75 MG, 2X/DAY
     Route: 048
     Dates: start: 20150422, end: 20150622
  2. ULTRAM [Concomitant]
     Active Substance: TRAMADOL HYDROCHLORIDE
     Dosage: 50 MG, AS NEEDED (TAKE 1 TABLET ORAL EVERY 6HRS AS NEEDED)
     Route: 048
     Dates: start: 20150318, end: 20150318
  3. NORCO [Concomitant]
     Active Substance: ACETAMINOPHEN\HYDROCODONE BITARTRATE
     Indication: PAIN
     Dosage: 1 TAB (HYDROCODONE BITARTRATE-5 MG, PARACETAMOL-325 MG), 3X/DAY AS NEEDED
     Route: 048
     Dates: start: 20150318, end: 20150417
  4. LYRICA [Suspect]
     Active Substance: PREGABALIN
     Indication: NEUROPATHY PERIPHERAL
     Dosage: 75 MG, 2X/DAY
     Route: 048
     Dates: start: 20150622
  5. LYRICA [Suspect]
     Active Substance: PREGABALIN
     Indication: NECK PAIN
  6. ULTRAM [Concomitant]
     Active Substance: TRAMADOL HYDROCHLORIDE
     Dosage: 50 MG, AS NEEDED (TAKE 1 TABLET ORAL EVERY 6HRS AS NEEDED)
     Route: 048
     Dates: start: 20150218, end: 20150318
  7. LISINOPRIL-HIDROCLOROTIAZIDA [Concomitant]
     Indication: HYPERTENSION
     Dosage: 20-24 MG, 1X/DAY
     Route: 048
  8. CYCLOBENZAPRINE [Concomitant]
     Active Substance: CYCLOBENZAPRINE
     Indication: MUSCLE SPASMS
  9. ULTRAM [Concomitant]
     Active Substance: TRAMADOL HYDROCHLORIDE
     Indication: PAIN
     Dosage: 50 MG, AS NEEDED (TAKE 1 TABLET ORAL EVERY 6HRS AS NEEDED)
     Route: 048
     Dates: start: 20150127, end: 20150218
  10. ALBUTEROL. [Concomitant]
     Active Substance: ALBUTEROL
     Dosage: 0.09 MG, EVERY 4 HOURS AS NEEDED
     Route: 055
     Dates: start: 20150127
  11. NORCO [Concomitant]
     Active Substance: ACETAMINOPHEN\HYDROCODONE BITARTRATE
     Dosage: 1 TAB (HYDROCODONE BITARTRATE-7.5 MG, PARACETAMOL-325 MG) DAILY AS NEEDED
     Dates: start: 20150622
  12. LYRICA [Suspect]
     Active Substance: PREGABALIN
     Indication: NERVE COMPRESSION
     Dosage: 75 MG, 2X/DAY
     Route: 048
     Dates: start: 20150127, end: 20150422
  13. METFORMIN [Concomitant]
     Active Substance: METFORMIN HYDROCHLORIDE
     Dosage: 500 MG, 2X/DAY
     Route: 048
     Dates: start: 20150601
  14. NORCO [Concomitant]
     Active Substance: ACETAMINOPHEN\HYDROCODONE BITARTRATE
     Indication: ARTHRALGIA
     Dosage: 1 TAB (HYDROCODONE BITARTRATE-7.5 MG, PARACETAMOL-325 MG), 3X/DAY AS NEEDED
     Route: 048
     Dates: start: 20150511, end: 20150622
  15. NORCO [Concomitant]
     Active Substance: ACETAMINOPHEN\HYDROCODONE BITARTRATE
     Dosage: 1 TAB (HYDROCODONE BITARTRATE-7.5 MG, PARACETAMOL-325 MG) 3X/DAY AS NEEDED
     Dates: start: 20150622, end: 20150622
  16. LYRICA [Suspect]
     Active Substance: PREGABALIN
     Indication: NEURALGIA
     Dosage: 75 MG, 2X/DAY
     Route: 048
     Dates: start: 20150622, end: 20150622
  17. METFORMIN [Concomitant]
     Active Substance: METFORMIN HYDROCHLORIDE
     Dosage: 500 MG, 2X/DAY
     Route: 048
     Dates: start: 20150127, end: 20150601
  18. ALBUTEROL. [Concomitant]
     Active Substance: ALBUTEROL
     Dosage: 4X/DAY (2 PUFFS)
     Route: 055
  19. PAXIL CR [Concomitant]
     Active Substance: PAROXETINE HYDROCHLORIDE
     Dosage: 120 MG, 1X/DAY
     Route: 048
  20. LISINOPRIL-HIDROCLOROTIAZIDA [Concomitant]
     Dosage: 1 TAB (LISINOPRIL-20 MG, HYDROCHLOROTHIAZIDE-25 MG), 1X/DAY
     Route: 048
     Dates: start: 20150127, end: 20150622
  21. CYCLOBENZAPRINE [Concomitant]
     Active Substance: CYCLOBENZAPRINE
     Indication: PAIN
     Dosage: 10 MG, 3X/DAY (TAKE 1  TABLET ORAL 3X A DAY AS NEEDED)
     Route: 048
     Dates: start: 20150318
  22. PAXIL CR [Concomitant]
     Active Substance: PAROXETINE HYDROCHLORIDE
     Indication: DEPRESSION
     Dosage: 20 MG, DAILY
     Route: 048
     Dates: start: 20150127
  23. BLACK COHOSH [Concomitant]
     Active Substance: BLACK COHOSH
     Dosage: UNK
  24. NORCO [Concomitant]
     Active Substance: ACETAMINOPHEN\HYDROCODONE BITARTRATE
     Indication: NECK PAIN
     Dosage: 1 TAB (HYDROCODONE BITARTRATE-5 MG, PARACETAMOL-325 MG), 3X/DAY AS NEEDED
     Route: 048
     Dates: start: 20150417, end: 20150511
  25. LISINOPRIL-HIDROCLOROTIAZIDA [Concomitant]
     Dosage: 1 TAB (LISINOPRIL-20 MG, HYDROCHLOROTHIAZIDE-25 MG), 1X/DAY
     Route: 048
     Dates: start: 20150622
  26. NORCO [Concomitant]
     Active Substance: ACETAMINOPHEN\HYDROCODONE BITARTRATE
     Indication: BACK PAIN
     Dosage: 1 TAB (HYDROCODONE BITARTRATE-7.5 MG, PARACETAMOL-325 MG) DAILY
     Route: 048
     Dates: start: 20150511, end: 20150511

REACTIONS (6)
  - Lymphadenopathy [Unknown]
  - Therapeutic response unexpected [Unknown]
  - Condition aggravated [Unknown]
  - Pre-existing condition improved [Unknown]
  - Thyroid neoplasm [Unknown]
  - Neoplasm [Unknown]
